FAERS Safety Report 16659745 (Version 1)
Quarter: 2019Q3

REPORT INFORMATION
  Report Type: Spontaneous
  Country: CA (occurrence: CA)
  Receive Date: 20190802
  Receipt Date: 20190802
  Transmission Date: 20191004
  Serious: Yes (Other)
  Sender: FDA-Public Use
  Company Number: CA-SA-2017SA097266

PATIENT
  Age: 37 Year
  Sex: Male

DRUGS (4)
  1. CICLOSPORIN [Suspect]
     Active Substance: CYCLOSPORINE
     Indication: IMMUNOSUPPRESSANT DRUG THERAPY
     Dosage: 100 MG, QD
     Route: 048
  2. LEFLUNOMIDE. [Suspect]
     Active Substance: LEFLUNOMIDE
     Indication: TRICHODYSPLASIA SPINULOSA
     Dosage: 100 MG,QD
     Route: 048
  3. LEFLUNOMIDE. [Suspect]
     Active Substance: LEFLUNOMIDE
     Dosage: 40 MG,QD
     Route: 048
  4. LEFLUNOMIDE. [Suspect]
     Active Substance: LEFLUNOMIDE
     Dosage: 20 MG,QD
     Route: 048

REACTIONS (9)
  - Papule [Recovering/Resolving]
  - Liver function test abnormal [Recovered/Resolved]
  - Off label use [Unknown]
  - Human polyomavirus infection [Recovered/Resolved]
  - Trichodysplasia spinulosa [Recovered/Resolved]
  - Hyperkeratosis [Recovering/Resolving]
  - Therapeutic response unexpected [Unknown]
  - Rash [Recovering/Resolving]
  - Alopecia [Recovering/Resolving]
